FAERS Safety Report 19520642 (Version 1)
Quarter: 2021Q3

REPORT INFORMATION
  Report Type: Spontaneous
  Country: IT (occurrence: IT)
  Receive Date: 20210712
  Receipt Date: 20210712
  Transmission Date: 20211014
  Serious: Yes (Hospitalization)
  Sender: FDA-Public Use
  Company Number: IT-MYLANLABS-2021M1041127

PATIENT
  Age: 37 Year
  Sex: Female

DRUGS (2)
  1. ESTRADIOL MYLAN [Suspect]
     Active Substance: ESTRADIOL
     Indication: HORMONE REPLACEMENT THERAPY
     Dosage: 8 MILLIGRAM
     Route: 065
  2. PROGESTERONE. [Suspect]
     Active Substance: PROGESTERONE
     Indication: HORMONE REPLACEMENT THERAPY
     Dosage: 200 MILLIGRAM
     Route: 065

REACTIONS (4)
  - Embolic cerebral infarction [Recovered/Resolved]
  - Ovarian hyperstimulation syndrome [Unknown]
  - Embolic stroke [Recovered/Resolved]
  - Carotid artery dissection [Recovered/Resolved]
